FAERS Safety Report 24080808 (Version 5)
Quarter: 2025Q4

REPORT INFORMATION
  Report Type: Spontaneous
  Country: US (occurrence: US)
  Receive Date: 20240711
  Receipt Date: 20251014
  Transmission Date: 20260118
  Serious: Yes (Other)
  Sender: JOHNSON AND JOHNSON
  Company Number: US-JNJFOC-20240709881

PATIENT
  Age: 50 Year
  Sex: Male

DRUGS (2)
  1. CARVYKTI [Suspect]
     Active Substance: CILTACABTAGENE AUTOLEUCEL
     Indication: Plasma cell myeloma refractory
     Route: 042
     Dates: start: 20231205, end: 20231205
  2. CARVYKTI [Suspect]
     Active Substance: CILTACABTAGENE AUTOLEUCEL
     Indication: Plasma cell myeloma

REACTIONS (5)
  - Peripheral T-cell lymphoma unspecified [Recovered/Resolved]
  - Cytokine release syndrome [Unknown]
  - Rhinovirus infection [Unknown]
  - COVID-19 [Unknown]
  - Respiratory syncytial virus infection [Unknown]
